FAERS Safety Report 9898007 (Version 3)
Quarter: 2014Q1

REPORT INFORMATION
  Report Type: Spontaneous
  Country: JP (occurrence: JP)
  Receive Date: 20140214
  Receipt Date: 20140227
  Transmission Date: 20141002
  Serious: Yes (Hospitalization)
  Sender: FDA-Public Use
  Company Number: JP-B.I. PHARMACEUTICALS,INC./RIDGEFIELD-2014-BI-06013NB

PATIENT
  Age: 78 Year
  Sex: Female
  Weight: 75 kg

DRUGS (16)
  1. PRADAXA [Suspect]
     Indication: CEREBROVASCULAR ACCIDENT PROPHYLAXIS
     Dosage: 220 MG
     Route: 048
     Dates: start: 20140205, end: 20140210
  2. MICARDIS / TELMISARTAN [Concomitant]
     Dosage: 80 MG
     Route: 048
  3. METGLUCO / METFORMIN HYDROCHLORIDE [Concomitant]
     Dosage: 1000 MG
     Route: 048
     Dates: end: 20140211
  4. MUCOSTA / REBAMIPIDE [Concomitant]
     Dosage: 300 MG
     Route: 048
  5. MAGMITT / MAGNESIUM OXIDE [Concomitant]
     Dosage: 990 MG
     Route: 048
  6. LANTUS / INSULIN GLARGINE(GENETICAL RECOMBINATION) [Concomitant]
     Route: 065
  7. CALFINA / ALFACALCIDOL [Concomitant]
     Dosage: 0.5 MCG
     Route: 048
     Dates: end: 20140211
  8. GLIMEPIRIDE / GLIMEPIRIDE [Concomitant]
     Dosage: DAILY DOSE: 1 DF
     Route: 048
     Dates: end: 20140211
  9. ATORVASTATIN / ATORVASTATIN CALCIUM HYDRATE [Concomitant]
     Dosage: 2.5 MG
     Route: 048
     Dates: end: 20140211
  10. ADALAT / NIFEDIPINE [Concomitant]
     Route: 065
  11. NOVORAPID / INSULIN ASPART(GENETICAL RECOMBINATION) [Concomitant]
     Route: 065
  12. BESACOLIN / BETHANECHOL CHLORIDE [Concomitant]
     Dosage: 0.9 G
     Route: 048
     Dates: end: 20140211
  13. UBRETID / DISTIGMINE BROMIDE [Concomitant]
     Dosage: 5 MG
     Route: 048
  14. NIFEDIPINE CR / NIFEDIPINE [Concomitant]
     Dosage: 80 MG
     Route: 048
  15. EBRANTIL / URAPIDIL [Concomitant]
     Dosage: 20 MG
     Route: 048
     Dates: end: 20140211
  16. FUROSEMIDE [Concomitant]
     Dosage: 40 MG
     Route: 048
     Dates: end: 20140211

REACTIONS (1)
  - Interstitial lung disease [Recovered/Resolved]
